FAERS Safety Report 5638459-4 (Version None)
Quarter: 2008Q1

REPORT INFORMATION
  Report Type: 
  Country: None (occurrence: None)
  Receive Date: 20080222
  Receipt Date: 20080208
  Transmission Date: 20080703
  Serious: Yes (Life-Threatening, Other)
  Sender: FDA-Public Use
  Company Number: 2006JP001624

PATIENT
  Age: 29 Year
  Sex: Female
  Weight: 39 kg

DRUGS (20)
  1. PROGRAF [Suspect]
     Indication: SMALL INTESTINE TRANSPLANT
     Dosage: 4 MG, BID, ORAL, 1.5 MG, BID, ORAL
     Route: 048
     Dates: start: 20040316, end: 20051101
  2. PROGRAF [Suspect]
     Indication: SMALL INTESTINE TRANSPLANT
     Dosage: 4 MG, BID, ORAL, 1.5 MG, BID, ORAL
     Route: 048
     Dates: start: 20051101
  3. PROGRAF [Suspect]
     Indication: SMALL INTESTINE TRANSPLANT
     Dosage: IV DRIP
     Route: 041
  4. RAPAMYCIN(SIROLIMUS) PER ORAL NOS [Suspect]
     Indication: SMALL INTESTINE TRANSPLANT
     Dosage: 4 MG, UID/QD, ORAL
     Route: 048
     Dates: start: 20051101
  5. DACLIZUMAB(DACLIZUMAB) FORMUL [Suspect]
     Indication: SMALL INTESTINE TRANSPLANT
     Dosage: 100 MG, UID/QD, 100 MG, 50 MG
     Dates: start: 20040316, end: 20040316
  6. DACLIZUMAB(DACLIZUMAB) FORMUL [Suspect]
     Indication: SMALL INTESTINE TRANSPLANT
     Dosage: 100 MG, UID/QD, 100 MG, 50 MG
     Dates: start: 20040320, end: 20040320
  7. DACLIZUMAB(DACLIZUMAB) FORMUL [Suspect]
     Indication: SMALL INTESTINE TRANSPLANT
     Dosage: 100 MG, UID/QD, 100 MG, 50 MG
     Dates: start: 20040327, end: 20040327
  8. DACLIZUMAB(DACLIZUMAB) FORMUL [Suspect]
     Indication: SMALL INTESTINE TRANSPLANT
     Dosage: 100 MG, UID/QD, 100 MG, 50 MG
     Dates: start: 20040410, end: 20040605
  9. DACLIZUMAB(DACLIZUMAB) FORMUL [Suspect]
     Indication: SMALL INTESTINE TRANSPLANT
     Dosage: 100 MG, UID/QD, 100 MG, 50 MG
     Dates: start: 20040619, end: 20040828
  10. METHYLPREDNISOLONE [Suspect]
     Indication: SMALL INTESTINE TRANSPLANT
     Dosage: 10 MG/KG, D, IV NOS, 0.5 MG/KG, D, IV NOS
     Route: 042
     Dates: start: 20040316, end: 20040321
  11. METHYLPREDNISOLONE [Suspect]
     Indication: SMALL INTESTINE TRANSPLANT
     Dosage: 10 MG/KG, D, IV NOS, 0.5 MG/KG, D, IV NOS
     Route: 042
     Dates: start: 20040322, end: 20040413
  12. METHYLPREDNISOLONE [Suspect]
     Indication: SMALL INTESTINE TRANSPLANT
     Dosage: 0.5 MG/KG, D, ORAL
     Route: 048
     Dates: start: 20040414
  13. LOPEMIN (LOPERAMIDE HYDROCHLORIDE) CAPSULE [Concomitant]
  14. BIO THREE TABLET [Concomitant]
  15. ENTERONON R (STREPTOCOCCUS FAECALIS, LACTOBACILLUS ACIDOPHILUS, STREPT [Concomitant]
  16. BAKTAR (SULFAMETHOXAZOLE, TRIMETHOPRIM) TABLET [Concomitant]
  17. FAMOTIDINE [Concomitant]
  18. MEDROL [Concomitant]
  19. PARENTERAL (SODIUM ACETATE TRIHYDRATE, POTASSIU, CHLORIDE, SODIUM CHLO [Concomitant]
  20. BIFIDOBACTERIUM BIFIDUM' LACTOBACILLUS LACTIS [Concomitant]

REACTIONS (6)
  - CONDITION AGGRAVATED [None]
  - DEHYDRATION [None]
  - ELECTROLYTE IMBALANCE [None]
  - RENAL IMPAIRMENT [None]
  - SEPSIS [None]
  - TRANSPLANT REJECTION [None]
